FAERS Safety Report 8099436-X (Version None)
Quarter: 2012Q1

REPORT INFORMATION
  Report Type: 
  Country: None (occurrence: None)
  Receive Date: 20120129
  Receipt Date: 20111006
  Transmission Date: 20120608
  Serious: No
  Sender: FDA-Public Use
  Company Number: US-ABBOTT-11P-163-0861658-00

PATIENT
  Sex: Male
  Weight: 106.69 kg

DRUGS (5)
  1. ASTELIN [Concomitant]
     Indication: HYPERSENSITIVITY
     Route: 045
  2. PREVACID [Concomitant]
     Indication: GASTRIC DISORDER
     Dosage: STRONG PRESCRIBED PRESCRIPTION
  3. ZYRTEC [Concomitant]
     Indication: HYPERSENSITIVITY
  4. HUMIRA [Suspect]
     Indication: ANKYLOSING SPONDYLITIS
     Route: 058
     Dates: start: 20110922
  5. OXYCODONE HCL [Concomitant]
     Indication: PAIN

REACTIONS (2)
  - INJECTION SITE HAEMATOMA [None]
  - INJECTION SITE PAIN [None]
